FAERS Safety Report 13071308 (Version 2)
Quarter: 2017Q1

REPORT INFORMATION
  Report Type: Spontaneous
  Country: RO (occurrence: RO)
  Receive Date: 20161229
  Receipt Date: 20170220
  Transmission Date: 20170428
  Serious: Yes (Death, Hospitalization, Other)
  Sender: FDA-Public Use
  Company Number: RO-BRISTOL-MYERS SQUIBB COMPANY-BMS-2016-109620

PATIENT
  Age: 88 Year
  Sex: Female

DRUGS (1)
  1. ELIQUIS [Suspect]
     Active Substance: APIXABAN
     Indication: CEREBROVASCULAR ACCIDENT PROPHYLAXIS
     Dosage: 2.5 MG, BID
     Route: 048
     Dates: start: 20161201

REACTIONS (3)
  - Haemorrhagic disorder [Recovering/Resolving]
  - Cardiopulmonary failure [Fatal]
  - Asthma [Unknown]

NARRATIVE: CASE EVENT DATE: 20161206
